FAERS Safety Report 6555763-6 (Version None)
Quarter: 2010Q1

REPORT INFORMATION
  Report Type: 
  Country: None (occurrence: None)
  Receive Date: 20100127
  Receipt Date: 20100121
  Transmission Date: 20100710
  Serious: Yes (Hospitalization)
  Sender: FDA-Public Use
  Company Number: DL2010-0060

PATIENT
  Age: 24 Year
  Sex: Female

DRUGS (3)
  1. MIFEPRISTONE (MIFEPREX) [Suspect]
     Indication: ABORTION INDUCED
     Dosage: 200 MG, ORAL
     Route: 048
     Dates: start: 20091209
  2. MISOPROSTOL [Suspect]
     Dosage: 800 MCG, BUCCAL, NOT TAKEN
     Route: 002
  3. DOXYCYCLINE [Concomitant]

REACTIONS (6)
  - ABDOMINAL PAIN [None]
  - CHILLS [None]
  - HAEMORRHAGE [None]
  - INFECTION [None]
  - MUSCLE SPASMS [None]
  - PYREXIA [None]
